FAERS Safety Report 14201058 (Version 1)
Quarter: 2017Q4

REPORT INFORMATION
  Report Type: Spontaneous
  Country: US (occurrence: US)
  Receive Date: 20171117
  Receipt Date: 20171117
  Transmission Date: 20180321
  Serious: No
  Sender: FDA-Public Use
  Company Number: US-NOVOPROD-564851

PATIENT
  Age: 58 Year
  Sex: Female

DRUGS (2)
  1. LEVEMIR [Concomitant]
     Active Substance: INSULIN DETEMIR
     Indication: TYPE 2 DIABETES MELLITUS
     Route: 058
  2. NOVOLOG [Suspect]
     Active Substance: INSULIN ASPART
     Indication: TYPE 2 DIABETES MELLITUS
     Dosage: SLIDING SCALE (5-12 UNITS)
     Route: 058
     Dates: start: 2014

REACTIONS (11)
  - Throat irritation [Unknown]
  - Product odour abnormal [Unknown]
  - Bradycardia [Unknown]
  - Asthenia [Unknown]
  - Drug effect decreased [Recovered/Resolved]
  - Blood pressure decreased [Unknown]
  - Product quality issue [Unknown]
  - Dizziness [Unknown]
  - Nausea [Unknown]
  - Drug hypersensitivity [Unknown]
  - Blood glucose increased [Recovered/Resolved]

NARRATIVE: CASE EVENT DATE: 20170919
